FAERS Safety Report 16804814 (Version 1)
Quarter: 2019Q3

REPORT INFORMATION
  Report Type: Spontaneous
  Country: US (occurrence: US)
  Receive Date: 20190913
  Receipt Date: 20190913
  Transmission Date: 20191005
  Serious: Yes (Hospitalization, Other)
  Sender: FDA-Public Use
  Company Number: US-ALEMBIC PHARMACUETICALS LIMITED-2019SCAL000631

PATIENT

DRUGS (7)
  1. CALCITRIOL. [Concomitant]
     Active Substance: CALCITRIOL
     Indication: PRODUCT USED FOR UNKNOWN INDICATION
     Dosage: OD
  2. CALCIUM ACETATE. [Concomitant]
     Active Substance: CALCIUM ACETATE
     Indication: PRODUCT USED FOR UNKNOWN INDICATION
     Dosage: OD
  3. METFORMIN [Concomitant]
     Active Substance: METFORMIN HYDROCHLORIDE
     Indication: PRODUCT USED FOR UNKNOWN INDICATION
     Dosage: OD
  4. CALCIUM CARBONATE W/VITAMIN D [CALCIUM CARBONATE;COLECALCIFEROL] [Concomitant]
     Indication: PRODUCT USED FOR UNKNOWN INDICATION
     Dosage: OD
  5. HYDROCHLOROTHIAZIDE. [Suspect]
     Active Substance: HYDROCHLOROTHIAZIDE
     Indication: PRODUCT USED FOR UNKNOWN INDICATION
     Dosage: UNK
  6. CHOLECALCIFEROL [Concomitant]
     Active Substance: CHOLECALCIFEROL
     Indication: PRODUCT USED FOR UNKNOWN INDICATION
     Dosage: OD
  7. LOSARTAN. [Concomitant]
     Active Substance: LOSARTAN
     Indication: PRODUCT USED FOR UNKNOWN INDICATION
     Dosage: UNK

REACTIONS (19)
  - Renal tubular necrosis [Unknown]
  - Metabolic acidosis [Unknown]
  - Decreased appetite [Unknown]
  - Vomiting [Unknown]
  - Coma scale abnormal [Unknown]
  - Mental status changes [Unknown]
  - Pancreatic steatosis [Unknown]
  - Diarrhoea [Unknown]
  - Hypotension [Unknown]
  - Pancreatic enlargement [Unknown]
  - Tachycardia [Unknown]
  - Acute kidney injury [Unknown]
  - Hypercalcaemia [Unknown]
  - Abdominal distension [Unknown]
  - Tachypnoea [Unknown]
  - Lactic acidosis [Unknown]
  - Milk-alkali syndrome [Unknown]
  - Pancreatitis acute [Unknown]
  - Abdominal pain upper [Unknown]
